FAERS Safety Report 9228899 (Version 1)
Quarter: 2013Q2

REPORT INFORMATION
  Report Type: Report from Study
  Country: JP (occurrence: JP)
  Receive Date: 20130412
  Receipt Date: 20130426
  Transmission Date: 20140414
  Serious: Yes (Hospitalization)
  Sender: FDA-Public Use
  Company Number: JP-ABBOTT-13P-087-1074982-00

PATIENT
  Age: 67 Year
  Sex: Male

DRUGS (5)
  1. LEUPROLELIN ACETATE [Suspect]
     Indication: SPINAL MUSCULAR ATROPHY
     Route: 058
     Dates: start: 20120725
  2. CARVEDILOL TATUMI [Concomitant]
     Indication: HYPERTENSION
     Dosage: 0-20 MG/DAY
     Route: 048
     Dates: start: 20050108
  3. DOWNAT [Concomitant]
     Indication: HYPERTENSION
     Dosage: 2-3 MG/DAY
     Route: 048
     Dates: start: 20050108
  4. SIMVASTATIN [Concomitant]
     Indication: HYPERLIPIDAEMIA
     Route: 048
     Dates: start: 20010227
  5. BEZALEX SR [Concomitant]
     Indication: HYPERLIPIDAEMIA
     Route: 048
     Dates: start: 20010227

REACTIONS (1)
  - Gastric cancer [Recovered/Resolved]
